APPROVED DRUG PRODUCT: AMMONIA N 13
Active Ingredient: AMMONIA N-13
Strength: 3.75mCi-260mCi/ML
Dosage Form/Route: INJECTABLE;INTRAVENOUS
Application: A203543 | Product #001 | TE Code: AP
Applicant: SOFIE CO DBA SOFIE
Approved: Dec 14, 2012 | RLD: No | RS: Yes | Type: RX